FAERS Safety Report 15824626 (Version 1)
Quarter: 2019Q1

REPORT INFORMATION
  Report Type: Spontaneous
  Country: IN (occurrence: IN)
  Receive Date: 20190115
  Receipt Date: 20190115
  Transmission Date: 20190417
  Serious: Yes (Other)
  Sender: FDA-Public Use
  Company Number: IN-TORRENT-00002095

PATIENT
  Age: 7 Year
  Sex: Female

DRUGS (4)
  1. VALPROATE [Suspect]
     Active Substance: VALPROIC ACID
     Indication: SEIZURE
     Dosage: UNKNOWN
  2. LAMOTRIGINE. [Suspect]
     Active Substance: LAMOTRIGINE
     Indication: SEIZURE
     Dosage: UNKNOWN
  3. NITRAZEPAM [Suspect]
     Active Substance: NITRAZEPAM
     Indication: SEIZURE
     Dosage: UNKNOWN
  4. PHENOBARBITONE [Suspect]
     Active Substance: PHENOBARBITAL
     Indication: SEIZURE
     Dosage: UNKNOWN

REACTIONS (2)
  - Seizure [Recovering/Resolving]
  - Drug ineffective [Unknown]
